FAERS Safety Report 6409490-6 (Version None)
Quarter: 2009Q4

REPORT INFORMATION
  Report Type: 
  Country: None (occurrence: None)
  Receive Date: 20091019
  Receipt Date: 20090930
  Transmission Date: 20100525
  Serious: Yes (Other)
  Sender: FDA-Public Use
  Company Number: 20090446

PATIENT
  Age: 17 Year
  Sex: Male

DRUGS (1)
  1. ACETYLCYSTEINE SOLUTION, USP (7504-25) 100MG/ML (10%) [Suspect]
     Indication: OVERDOSE
     Dosage: INTRAVENOUS

REACTIONS (3)
  - HYPERAEMIA [None]
  - INCORRECT ROUTE OF DRUG ADMINISTRATION [None]
  - INJECTION SITE ERYTHEMA [None]
